FAERS Safety Report 7571151-8 (Version None)
Quarter: 2011Q2

REPORT INFORMATION
  Report Type: 
  Country: None (occurrence: None)
  Receive Date: 20110620
  Receipt Date: 20110603
  Transmission Date: 20111010
  Serious: Yes (Life-Threatening, Hospitalization)
  Sender: FDA-Public Use
  Company Number: 2011MA006729

PATIENT
  Age: 36 Year
  Sex: Female

DRUGS (3)
  1. RANITIDINE HCL [Suspect]
     Indication: DYSPEPSIA
     Dosage: 150 MG; BID;PO
     Route: 048
  2. RANITIDINE HCL [Suspect]
     Indication: GASTROOESOPHAGEAL REFLUX DISEASE
     Dosage: 150 MG; BID;PO
     Route: 048
  3. CISAPRIDE [Concomitant]

REACTIONS (9)
  - TORSADE DE POINTES [None]
  - PULSE ABSENT [None]
  - NO THERAPEUTIC RESPONSE [None]
  - GASTROENTERITIS [None]
  - FALL [None]
  - BLOOD MAGNESIUM DECREASED [None]
  - LOSS OF CONSCIOUSNESS [None]
  - VENTRICULAR TACHYCARDIA [None]
  - BLOOD POTASSIUM DECREASED [None]
